FAERS Safety Report 9215131 (Version 1)
Quarter: 2013Q2

REPORT INFORMATION
  Report Type: Spontaneous
  Country: NL (occurrence: NL)
  Receive Date: 20130405
  Receipt Date: 20130405
  Transmission Date: 20140414
  Serious: Yes (Hospitalization)
  Sender: FDA-Public Use
  Company Number: PHHY2012NL098533

PATIENT
  Age: 66 Year
  Sex: Female

DRUGS (4)
  1. TOBI PODHALER [Suspect]
     Indication: CHRONIC OBSTRUCTIVE PULMONARY DISEASE
     Dosage: USED FOR 3 WEEKS
  2. TOBI PODHALER [Suspect]
     Indication: EMPHYSEMA
  3. SERETIDE [Concomitant]
     Dosage: UNK
  4. SEREVENT [Concomitant]
     Indication: CHRONIC OBSTRUCTIVE PULMONARY DISEASE
     Dosage: UNK UKN, UNK

REACTIONS (4)
  - Cardiac disorder [Unknown]
  - Condition aggravated [Unknown]
  - Dyspnoea [Not Recovered/Not Resolved]
  - Fatigue [Unknown]
